FAERS Safety Report 17784311 (Version 1)
Quarter: 2020Q2

REPORT INFORMATION
  Report Type: Spontaneous
  Country: FR (occurrence: FR)
  Receive Date: 20200513
  Receipt Date: 20200513
  Transmission Date: 20200714
  Serious: Yes (Other)
  Sender: FDA-Public Use
  Company Number: NVSC2020FR129418

PATIENT
  Age: 77 Year
  Sex: Female

DRUGS (4)
  1. DIAMOX SEQUELS [Suspect]
     Active Substance: ACETAZOLAMIDE
     Indication: GLAUCOMA
     Dosage: UNK
     Route: 065
  2. GANFORT [Suspect]
     Active Substance: BIMATOPROST\TIMOLOL
     Indication: GLAUCOMA
     Dosage: 1 GTT, QD
     Route: 047
  3. GLYCEROL [Suspect]
     Active Substance: GLYCERIN
     Indication: PRODUCT USED FOR UNKNOWN INDICATION
     Dosage: UNK
     Route: 065
  4. VISKEN [Suspect]
     Active Substance: PINDOLOL
     Indication: HYPERTENSION
     Dosage: 15
     Route: 065

REACTIONS (8)
  - Visual acuity reduced [Unknown]
  - Head discomfort [Recovered/Resolved]
  - Skin discolouration [Unknown]
  - Alopecia [Unknown]
  - Suicidal ideation [Unknown]
  - Vision blurred [Unknown]
  - Diarrhoea [Unknown]
  - Ocular hyperaemia [Recovered/Resolved]
